FAERS Safety Report 12882367 (Version 4)
Quarter: 2024Q3

REPORT INFORMATION
  Report Type: Spontaneous
  Country: AR (occurrence: AR)
  Receive Date: 20161025
  Receipt Date: 20240923
  Transmission Date: 20241017
  Serious: Yes (Death, Hospitalization, Other)
  Sender: SANOFI AVENTIS
  Company Number: AR-ASTRAZENECA-2015SE31157

PATIENT
  Age: 37 Year
  Sex: Female

DRUGS (4)
  1. CAPRELSA [Suspect]
     Active Substance: VANDETANIB
     Indication: Medullary thyroid cancer
     Dosage: 300 MG,QD
     Route: 048
     Dates: start: 201402
  2. CAPRELSA [Suspect]
     Active Substance: VANDETANIB
     Dosage: 300 MG,QD
     Route: 048
     Dates: start: 201403
  3. CAPRELSA [Suspect]
     Active Substance: VANDETANIB
     Dosage: UNK UNK,QD
     Route: 048
     Dates: end: 20150401
  4. CALCIUM [Concomitant]
     Active Substance: CALCIUM
     Dosage: UNK, QD (3 TO 4 GR DAILY)

REACTIONS (7)
  - Intestinal perforation [Fatal]
  - Ovarian cyst [Fatal]
  - Cushing^s syndrome [Fatal]
  - Sepsis [Fatal]
  - Peritonitis [Unknown]
  - Ovarian necrosis [Unknown]
  - Rash [Recovered/Resolved]

NARRATIVE: CASE EVENT DATE: 20150401
